FAERS Safety Report 7908139-0 (Version None)
Quarter: 2011Q4

REPORT INFORMATION
  Report Type: 
  Country: None (occurrence: None)
  Receive Date: 20111111
  Receipt Date: 20111107
  Transmission Date: 20120403
  Serious: No
  Sender: FDA-Public Use
  Company Number: US-BIOGENIDEC-2011BI026650

PATIENT
  Age: 55 Year
  Sex: Female

DRUGS (3)
  1. CYMBALTA [Concomitant]
     Indication: DEPRESSION
     Route: 048
  2. BUPROPION HCL [Concomitant]
     Indication: DEPRESSION
     Route: 048
  3. TYSABRI [Suspect]
     Indication: MULTIPLE SCLEROSIS
     Route: 042
     Dates: start: 20091118, end: 20110321

REACTIONS (1)
  - DRUG INEFFECTIVE [None]
